FAERS Safety Report 4631153-8 (Version None)
Quarter: 2005Q2

REPORT INFORMATION
  Report Type: 
  Country: None (occurrence: None)
  Receive Date: 20050407
  Receipt Date: 20050407
  Transmission Date: 20051028
  Serious: Yes (Hospitalization)
  Sender: FDA-Public Use
  Company Number: None

PATIENT
  Age: 84 Year
  Sex: Female

DRUGS (8)
  1. ZESTRIL [Suspect]
     Indication: HYPERTENSION
     Dosage: 10 MG  QD   ORAL
     Route: 048
  2. MYSOLINE [Suspect]
     Indication: TREMOR
     Dosage: 100 MG HS  ORAL
     Route: 048
  3. CELEXA [Concomitant]
  4. NEXIUM [Concomitant]
  5. TYLENOL W/ CODEINE NO. 3 [Concomitant]
  6. LASIX [Concomitant]
  7. GLUCOPHAGE [Concomitant]
  8. NEURONTIN [Concomitant]

REACTIONS (2)
  - MENTAL STATUS CHANGES [None]
  - RENAL FAILURE [None]
